FAERS Safety Report 7744448-6 (Version None)
Quarter: 2011Q3

REPORT INFORMATION
  Report Type: 
  Country: None (occurrence: None)
  Receive Date: 20110908
  Receipt Date: 20110825
  Transmission Date: 20111222
  Serious: Yes (Hospitalization, Disabling, Other)
  Sender: FDA-Public Use
  Company Number: 2011MA001952

PATIENT
  Age: 63 Year
  Sex: Female
  Weight: 56.6996 kg

DRUGS (39)
  1. BENZONATATE [Suspect]
  2. GLUCOPHAGE [Concomitant]
  3. NEURONTIN [Concomitant]
  4. M.V.I. [Concomitant]
  5. ALPHAGAN [Concomitant]
  6. PREDNISONE [Concomitant]
  7. HUMULIN R [Concomitant]
  8. FLUTICASONE PROPIONATE [Concomitant]
  9. METFORMIN HCL [Concomitant]
  10. TRIAMTERENE [Concomitant]
  11. METOCLOPRAMIDE [Suspect]
     Indication: PRODUCT USED FOR UNKNOWN INDICATION
     Dosage: 10 MG;BID;PO
     Route: 048
     Dates: start: 20071115, end: 20100101
  12. FLEXERIL [Concomitant]
  13. GLIPIZIDE [Concomitant]
  14. LYRICA [Concomitant]
  15. METHOTREXATE [Concomitant]
  16. NEXIUM [Concomitant]
  17. DIAMOX SRC [Concomitant]
  18. FOLIC ACID [Concomitant]
  19. PREVACID [Concomitant]
  20. ALLEGRA [Concomitant]
  21. CITALOPRAM HYDROBROMIDE [Concomitant]
  22. ENBREL [Concomitant]
  23. VALIUM [Concomitant]
  24. XIBROM [Concomitant]
  25. CLOTRIMAZOLE [Concomitant]
  26. PROAIR HFA [Concomitant]
  27. ALBUTEROL [Concomitant]
  28. TETRABENAZINE [Suspect]
  29. NITROFURANTOIN [Suspect]
  30. TRAMADOL HCL [Concomitant]
  31. FERROUS SULFATE TAB [Concomitant]
  32. ASPIRIN [Concomitant]
  33. DIPHENOXYLATE HCL + ATROPINE SULFATE [Concomitant]
  34. HYDROCODONE BITARTRATE AND ACETAMINOPHEN [Concomitant]
  35. MYCOPHENOLATE MOFETIL (CELLCEPT) [Concomitant]
  36. CLOR-CHRON [Concomitant]
  37. COSOPT [Concomitant]
  38. KENALOG [Concomitant]
  39. SERTRALINE HYDROCHLORIDE [Concomitant]

REACTIONS (55)
  - EMOTIONAL DISTRESS [None]
  - GASTROOESOPHAGEAL REFLUX DISEASE [None]
  - HYPERKINESIA [None]
  - FATIGUE [None]
  - DYSLIPIDAEMIA [None]
  - BLOOD POTASSIUM DECREASED [None]
  - DYSKINESIA [None]
  - PNEUMONIA [None]
  - URINARY TRACT INFECTION [None]
  - IRON DEFICIENCY [None]
  - FAMILY STRESS [None]
  - IMPAIRED GASTRIC EMPTYING [None]
  - BLINDNESS [None]
  - NEUROPATHY PERIPHERAL [None]
  - TARDIVE DYSKINESIA [None]
  - ANAEMIA [None]
  - LACERATION [None]
  - NAUSEA [None]
  - VOMITING [None]
  - FALL [None]
  - OSTEOARTHRITIS [None]
  - GASTRITIS [None]
  - EXERCISE TOLERANCE DECREASED [None]
  - HYPOKALAEMIA [None]
  - VISUAL ACUITY REDUCED [None]
  - GASTROINTESTINAL DISORDER [None]
  - ORAL CANDIDIASIS [None]
  - AUTONOMIC NEUROPATHY [None]
  - CHOREA [None]
  - ARTHROPATHY [None]
  - UVEITIS [None]
  - POLYP [None]
  - DYSARTHRIA [None]
  - DEPRESSION [None]
  - IRON DEFICIENCY ANAEMIA [None]
  - HEAD INJURY [None]
  - DIABETIC NEUROPATHY [None]
  - ROAD TRAFFIC ACCIDENT [None]
  - MUSCULAR WEAKNESS [None]
  - DIABETES MELLITUS [None]
  - SICKLE CELL ANAEMIA [None]
  - SARCOIDOSIS [None]
  - DIABETES MELLITUS INADEQUATE CONTROL [None]
  - SICKLE CELL TRAIT [None]
  - ATAXIA [None]
  - NERVOUS SYSTEM DISORDER [None]
  - BALANCE DISORDER [None]
  - ESSENTIAL TREMOR [None]
  - SLEEP APNOEA SYNDROME [None]
  - BRAIN INJURY [None]
  - ASTHENIA [None]
  - POST CONCUSSION SYNDROME [None]
  - WEIGHT INCREASED [None]
  - ARTHRALGIA [None]
  - DEHYDRATION [None]
